FAERS Safety Report 6279180-1 (Version None)
Quarter: 2009Q3

REPORT INFORMATION
  Report Type: 
  Country: None (occurrence: None)
  Receive Date: 20090723
  Receipt Date: 20090716
  Transmission Date: 20100115
  Serious: Yes (Death)
  Sender: FDA-Public Use
  Company Number: US-ROCHE-644437

PATIENT
  Sex: Female
  Weight: 156 kg

DRUGS (1)
  1. CAPECITABINE [Suspect]
     Indication: BREAST CANCER
     Dosage: 1000 MG AM, 1000 MG PM
     Route: 048
     Dates: start: 20090324

REACTIONS (1)
  - DEATH [None]
